FAERS Safety Report 7158437-6 (Version None)
Quarter: 2010Q4

REPORT INFORMATION
  Report Type: 
  Country: None (occurrence: None)
  Receive Date: 20101214
  Receipt Date: 20100526
  Transmission Date: 20110411
  Serious: No
  Sender: FDA-Public Use
  Company Number: US-ASTRAZENECA-2010SE24536

PATIENT
  Age: 80 Year
  Sex: Male

DRUGS (4)
  1. CRESTOR [Suspect]
     Route: 048
  2. ENALAPRIL [Concomitant]
  3. CELEBREX [Concomitant]
  4. SYNTHROID [Concomitant]

REACTIONS (1)
  - NECK PAIN [None]
